FAERS Safety Report 14179487 (Version 1)
Quarter: 2017Q4

REPORT INFORMATION
  Report Type: Spontaneous
  Country: US (occurrence: US)
  Receive Date: 20171110
  Receipt Date: 20171110
  Transmission Date: 20180321
  Serious: No
  Sender: FDA-Public Use
  Company Number: US-ASTRAZENECA-2017SF12426

PATIENT
  Age: 63 Year
  Sex: Male
  Weight: 108.9 kg

DRUGS (2)
  1. FARXIGA [Suspect]
     Active Substance: DAPAGLIFLOZIN PROPANEDIOL
     Indication: TYPE 2 DIABETES MELLITUS
     Dosage: FARXIGA SAMPLES WITH UNKNOWN DOSAGE TO TAKE TWO PILLS IN THE MORNING
     Route: 048
     Dates: start: 201709
  2. FARXIGA [Suspect]
     Active Substance: DAPAGLIFLOZIN PROPANEDIOL
     Indication: TYPE 2 DIABETES MELLITUS
     Route: 048
     Dates: end: 20171022

REACTIONS (6)
  - Nasal congestion [Recovering/Resolving]
  - Circumstance or information capable of leading to medication error [Recovered/Resolved with Sequelae]
  - Dyspnoea [Recovering/Resolving]
  - Sleep apnoea syndrome [Recovering/Resolving]
  - Panic reaction [Recovering/Resolving]
  - Upper-airway cough syndrome [Recovering/Resolving]

NARRATIVE: CASE EVENT DATE: 2017
